FAERS Safety Report 26092004 (Version 1)
Quarter: 2025Q4

REPORT INFORMATION
  Report Type: Spontaneous
  Country: US (occurrence: None)
  Receive Date: 20251126
  Receipt Date: 20251126
  Transmission Date: 20260119
  Serious: Yes (Hospitalization)
  Sender: FDA-CTU
  Company Number: None

PATIENT
  Age: 65 Year
  Sex: Male
  Weight: 122.9 kg

DRUGS (5)
  1. IPILIMUMAB [Suspect]
     Active Substance: IPILIMUMAB
     Dates: end: 20251006
  2. IPILIMUMAB [Suspect]
     Active Substance: IPILIMUMAB
  3. NIVOLUMAB [Suspect]
     Active Substance: NIVOLUMAB
     Dosage: OTHER FREQUENCY : PATIENT RECEIVED FIRST CYCLE OF TREATMENT PRIOR TO GOING ON STUDY.  PATIENT^S FIRST CYCLE WAS 8/27/2;?
     Dates: end: 20251006
  4. CEFEPIME [Concomitant]
     Active Substance: CEFEPIME HYDROCHLORIDE
  5. LEVOFLOXACIN [Concomitant]
     Active Substance: LEVOFLOXACIN

REACTIONS (8)
  - Pyrexia [None]
  - Oxygen saturation decreased [None]
  - Pneumonia [None]
  - Atelectasis [None]
  - Oedema [None]
  - Pulmonary oedema [None]
  - Lymphocyte count decreased [None]
  - Ejection fraction decreased [None]

NARRATIVE: CASE EVENT DATE: 20251024
